FAERS Safety Report 7602562-X (Version None)
Quarter: 2011Q3

REPORT INFORMATION
  Report Type: 
  Country: None (occurrence: None)
  Receive Date: 20110712
  Receipt Date: 20110705
  Transmission Date: 20111222
  Serious: Yes (Death, Other)
  Sender: FDA-Public Use
  Company Number: NL-CELGENEUS-114-20785-09041658

PATIENT

DRUGS (4)
  1. THALIDOMIDE [Suspect]
     Indication: MULTIPLE MYELOMA
     Dosage: 200 MILLIGRAM
     Route: 048
  2. PREDNISONE [Suspect]
     Indication: MULTIPLE MYELOMA
     Dosage: 1 MILLIGRAM/KILOGRAM
     Route: 065
  3. THALIDOMIDE [Suspect]
     Dosage: 50 MILLIGRAM
  4. MELPHALAN HYDROCHLORIDE [Suspect]
     Indication: MULTIPLE MYELOMA
     Dosage: .25 MILLIGRAM/KILOGRAM
     Route: 065

REACTIONS (4)
  - NEUROTOXICITY [None]
  - BONE MARROW TOXICITY [None]
  - DEATH [None]
  - NEUTROPENIC INFECTION [None]
